FAERS Safety Report 20313296 (Version 2)
Quarter: 2022Q1

REPORT INFORMATION
  Report Type: Spontaneous
  Country: US (occurrence: US)
  Receive Date: 20220109
  Receipt Date: 20220114
  Transmission Date: 20220423
  Serious: No
  Sender: FDA-Public Use
  Company Number: US-SANOFI-00911068

PATIENT
  Age: 71 Year
  Sex: Female

DRUGS (2)
  1. APIDRA [Suspect]
     Active Substance: INSULIN GLULISINE
     Indication: Type 2 diabetes mellitus
     Dosage: UNK UNK, TID; 7 UNITS ON FIRST MEAL, 6 UNITS ON SECOND MEAL, AND 5 UNITS ON THIRD MEAL
  2. LANTUS [Concomitant]
     Active Substance: INSULIN GLARGINE
     Dosage: UNK, QD

REACTIONS (2)
  - Visual impairment [Unknown]
  - Injection site bruising [Recovered/Resolved]
